FAERS Safety Report 7099521 (Version 4)
Quarter: 2018Q2

REPORT INFORMATION
  Report Type: Spontaneous
  Country: DE (occurrence: DE)
  Receive Date: 20090828
  Receipt Date: 20180530
  Transmission Date: 20180711
  Serious: Yes (Hospitalization, Other)
  Sender: FDA-Public Use
  Company Number: DE-PFIZER INC-2009257242

PATIENT
  Age: 25 Year
  Sex: Female
  Weight: 94 kg

DRUGS (2)
  1. AZULFIDINE [Suspect]
     Active Substance: SULFASALAZINE
     Indication: RHEUMATOID ARTHRITIS
     Dosage: 2 G, DAILY
     Route: 048
  2. FOLIC ACID. [Concomitant]
     Active Substance: FOLIC ACID
     Dosage: 5 MG, UNK

REACTIONS (1)
  - Abortion spontaneous [Recovered/Resolved with Sequelae]

NARRATIVE: CASE EVENT DATE: 20081027
